FAERS Safety Report 5945835-9 (Version None)
Quarter: 2008Q4

REPORT INFORMATION
  Report Type: 
  Country: None (occurrence: None)
  Receive Date: 20081106
  Receipt Date: 20081029
  Transmission Date: 20090506
  Serious: Yes (Death, Other)
  Sender: FDA-Public Use
  Company Number: 2008BI017515

PATIENT
  Sex: Female
  Weight: 49.8957 kg

DRUGS (19)
  1. TYSABRI [Suspect]
     Indication: MULTIPLE SCLEROSIS
     Dosage: 300 MG; QM; IV
     Route: 042
     Dates: start: 20080228, end: 20080522
  2. HYDROCHLOROTHIAZIDE [Concomitant]
  3. SINGULAIR [Concomitant]
  4. GABAPENTIN [Concomitant]
  5. NEXIUM [Concomitant]
  6. DILATIZEM [Concomitant]
  7. LORATADINE [Concomitant]
  8. PRAVACHOL [Concomitant]
  9. LORAZEPAM [Concomitant]
  10. NITROGLYCERIN [Concomitant]
  11. LEXAPRO [Concomitant]
  12. ZETIA [Concomitant]
  13. AMADOR [Concomitant]
  14. ALBUTEROL [Concomitant]
  15. PREMARIN [Concomitant]
  16. CLINDAMYCIN HCL [Concomitant]
  17. VICODIN [Concomitant]
  18. NASONEX [Concomitant]
  19. PREV MEDS [Concomitant]

REACTIONS (2)
  - LUNG NEOPLASM MALIGNANT [None]
  - METASTASES TO CENTRAL NERVOUS SYSTEM [None]
